FAERS Safety Report 12356495 (Version 5)
Quarter: 2016Q3

REPORT INFORMATION
  Report Type: Report from Study
  Country: US (occurrence: US)
  Receive Date: 20160511
  Receipt Date: 20160812
  Transmission Date: 20161109
  Serious: Yes (Hospitalization, Other)
  Sender: FDA-Public Use
  Company Number: US-JNJFOC-20160508521

PATIENT
  Age: 78 Year
  Sex: Male

DRUGS (25)
  1. TERAZOSIN HCL [Concomitant]
     Active Substance: TERAZOSIN HYDROCHLORIDE
     Route: 048
     Dates: start: 20160302
  2. VITAMIN C [Concomitant]
     Active Substance: ASCORBIC ACID
     Route: 048
  3. HYDROCHLOROTHIAZIDE. [Concomitant]
     Active Substance: HYDROCHLOROTHIAZIDE
     Indication: HYPERTENSION
     Route: 048
     Dates: start: 20060511
  4. AZITHROMYCIN ANHYDROUS. [Concomitant]
     Active Substance: AZITHROMYCIN ANHYDROUS
     Indication: SPLENOMEGALY
     Route: 048
     Dates: start: 20160407, end: 20160410
  5. FLUCONAZOLE. [Concomitant]
     Active Substance: FLUCONAZOLE
     Indication: PNEUMONIA
     Dates: start: 201604
  6. FLUCONAZOLE. [Concomitant]
     Active Substance: FLUCONAZOLE
     Indication: CRYPTOCOCCOSIS
     Dates: start: 201604
  7. IMBRUVICA [Suspect]
     Active Substance: IBRUTINIB
     Indication: CHRONIC LYMPHOCYTIC LEUKAEMIA
     Route: 048
     Dates: start: 20160323, end: 2016
  8. ALLOPURINOL. [Concomitant]
     Active Substance: ALLOPURINOL
     Route: 048
     Dates: start: 20160205
  9. METOLAZONE. [Concomitant]
     Active Substance: METOLAZONE
     Route: 048
  10. LACTULOSE. [Concomitant]
     Active Substance: LACTULOSE
  11. FUROSEMIDE. [Concomitant]
     Active Substance: FUROSEMIDE
     Route: 048
  12. TAMSULOSIN HCL [Concomitant]
     Active Substance: TAMSULOSIN
     Route: 048
     Dates: start: 20160302
  13. AMLODIPINE BESYLATE. [Concomitant]
     Active Substance: AMLODIPINE BESYLATE
     Route: 048
  14. POTASSIUM [Concomitant]
     Active Substance: POTASSIUM
     Dosage: 20 MEQ QD
     Route: 048
     Dates: start: 20160226
  15. STOOL SOFTENER [Concomitant]
     Active Substance: DOCUSATE CALCIUM
  16. ONDANSETRON [Concomitant]
     Active Substance: ONDANSETRON
     Indication: NAUSEA
     Dosage: 8 MG PRN EVERY 8 HOURS
     Route: 048
     Dates: start: 20160309
  17. HYDROCODONE BITARTRATE AND ACETAMINOPHEN [Concomitant]
     Active Substance: ACETAMINOPHEN\HYDROCODONE BITARTRATE
     Route: 048
  18. PANTOPRAZOLE SODIUM. [Concomitant]
     Active Substance: PANTOPRAZOLE SODIUM
     Route: 048
     Dates: start: 20160224
  19. ONDANSETRON [Concomitant]
     Active Substance: ONDANSETRON
     Indication: VOMITING
     Dosage: 8 MG PRN EVERY 8 HOURS
     Route: 048
     Dates: start: 20160309
  20. MILK OF MAGNESIA [Concomitant]
     Active Substance: MAGNESIUM HYDROXIDE
  21. METAMUCIL [Concomitant]
     Active Substance: PLANTAGO SEED
     Route: 048
  22. IMBRUVICA [Suspect]
     Active Substance: IBRUTINIB
     Indication: CHRONIC LYMPHOCYTIC LEUKAEMIA
     Route: 048
     Dates: start: 20160503
  23. VENTOLIN HFA [Concomitant]
     Active Substance: ALBUTEROL SULFATE
  24. IBUPROFEN. [Concomitant]
     Active Substance: IBUPROFEN
     Dosage: 600 MG, PRN THREE TIMES DAILY
     Route: 048
  25. PRAVASTATIN SODIUM. [Concomitant]
     Active Substance: PRAVASTATIN SODIUM
     Route: 048

REACTIONS (13)
  - Dyspepsia [Not Recovered/Not Resolved]
  - Platelet count decreased [Not Recovered/Not Resolved]
  - Pneumonia [None]
  - Skin exfoliation [None]
  - Constipation [Recovering/Resolving]
  - Erythema [None]
  - Capillary fragility [Recovering/Resolving]
  - Nausea [Recovered/Resolved]
  - Disseminated cryptococcosis [Recovering/Resolving]
  - Pancytopenia [Not Recovered/Not Resolved]
  - Sepsis [None]
  - Abdominal distension [Unknown]
  - Drug dose omission [None]

NARRATIVE: CASE EVENT DATE: 2016
